FAERS Safety Report 22357335 (Version 2)
Quarter: 2023Q2

REPORT INFORMATION
  Report Type: Report from Study
  Country: CA (occurrence: CA)
  Receive Date: 20230524
  Receipt Date: 20230531
  Transmission Date: 20230722
  Serious: Yes (Hospitalization)
  Sender: FDA-Public Use
  Company Number: CA-BIOGEN-2023BI01206534

PATIENT
  Sex: Female

DRUGS (1)
  1. SPINRAZA [Suspect]
     Active Substance: NUSINERSEN
     Indication: Spinal muscular atrophy
     Dosage: DAY 0,14,28,58 AND EVERY 4 MONTHS THEREAFTER
     Route: 050
     Dates: start: 20170712

REACTIONS (4)
  - Pneumonia aspiration [Unknown]
  - Blood potassium abnormal [Unknown]
  - Gastroenteritis viral [Unknown]
  - Blood magnesium abnormal [Unknown]
